FAERS Safety Report 18503989 (Version 1)
Quarter: 2020Q4

REPORT INFORMATION
  Report Type: Report from Study
  Country: US (occurrence: US)
  Receive Date: 20201113
  Receipt Date: 20201113
  Transmission Date: 20210114
  Serious: Yes (Hospitalization)
  Sender: FDA-Public Use
  Company Number: US-TAKEDA-2020TUS047210

PATIENT
  Age: 52 Year
  Sex: Male

DRUGS (7)
  1. SCOPOLAMINE [HYOSCINE] [Concomitant]
     Active Substance: SCOPOLAMINE
     Indication: NAUSEA
  2. TEDUGLUTIDE [Suspect]
     Active Substance: TEDUGLUTIDE
     Indication: SHORT-BOWEL SYNDROME
     Dosage: 5.0 MILLIGRAM (TED DAILY DOSES 999.000 MG/KG, TED DOSES PER WEEK 7)
     Route: 065
     Dates: start: 20170615, end: 20170713
  3. TEDUGLUTIDE [Suspect]
     Active Substance: TEDUGLUTIDE
     Indication: SHORT-BOWEL SYNDROME
     Dosage: 5.0 MILLIGRAM (TED DAILY DOSES 999.000 MG/KG, TED DOSES PER WEEK 7)
     Route: 065
     Dates: start: 20170615, end: 20170713
  4. ZOFRAN [Concomitant]
     Active Substance: ONDANSETRON HYDROCHLORIDE
     Indication: NAUSEA
  5. TEDUGLUTIDE [Suspect]
     Active Substance: TEDUGLUTIDE
     Indication: SHORT-BOWEL SYNDROME
     Dosage: 5.0 MILLIGRAM (TED DAILY DOSES 999.000 MG/KG, TED DOSES PER WEEK 7)
     Route: 065
     Dates: start: 20170615, end: 20170713
  6. TEDUGLUTIDE [Suspect]
     Active Substance: TEDUGLUTIDE
     Indication: SHORT-BOWEL SYNDROME
     Dosage: 5.0 MILLIGRAM (TED DAILY DOSES 999.000 MG/KG, TED DOSES PER WEEK 7)
     Route: 065
     Dates: start: 20170615, end: 20170713
  7. LOVENOX [LEVOFLOXACIN] [Concomitant]
     Active Substance: LEVOFLOXACIN
     Indication: VENOUS THROMBOSIS

REACTIONS (6)
  - Cytomegalovirus viraemia [Recovered/Resolved]
  - Abdominal wall disorder [Recovered/Resolved]
  - Venous thrombosis [Not Recovered/Not Resolved]
  - Nausea [Not Recovered/Not Resolved]
  - Hyperglycaemia [Not Recovered/Not Resolved]
  - Intra-abdominal fluid collection [Not Recovered/Not Resolved]

NARRATIVE: CASE EVENT DATE: 20200908
